FAERS Safety Report 25962391 (Version 1)
Quarter: 2025Q4

REPORT INFORMATION
  Report Type: Spontaneous
  Country: US (occurrence: None)
  Receive Date: 20251024
  Receipt Date: 20251024
  Transmission Date: 20260117
  Serious: No
  Sender: FDA-CTU
  Company Number: None

PATIENT
  Age: 74 Year
  Sex: Female
  Weight: 87.75 kg

DRUGS (12)
  1. LEVOCARNITINE\TIRZEPATIDE [Suspect]
     Active Substance: LEVOCARNITINE\TIRZEPATIDE
     Indication: Weight decreased
     Dosage: OTHER QUANTITY : 40 UNITS;?OTHER FREQUENCY : BIW;?
     Route: 058
  2. LOSARTAN [Concomitant]
     Active Substance: LOSARTAN
  3. OMEPRAZOLE [Concomitant]
     Active Substance: OMEPRAZOLE
  4. SERTRALINE [Concomitant]
     Active Substance: SERTRALINE HYDROCHLORIDE
  5. MONTELUKAST [Concomitant]
     Active Substance: MONTELUKAST
  6. TRIAMCINOLONE [Concomitant]
     Active Substance: TRIAMCINOLONE
  7. BETAMETHASONE [Concomitant]
     Active Substance: BETAMETHASONE
  8. PRN cyclobenzaprine [Concomitant]
  9. tirzepatide w/ carnitine [Concomitant]
  10. TYLENOL EXTRA STRENGTH [Concomitant]
     Active Substance: ACETAMINOPHEN
  11. DICLOFENAC [Concomitant]
     Active Substance: DICLOFENAC
  12. trolamine topical [Concomitant]

REACTIONS (4)
  - Urticaria [None]
  - Product compounding quality issue [None]
  - Immunoglobulins decreased [None]
  - Therapy change [None]
